FAERS Safety Report 8100225-8 (Version None)
Quarter: 2012Q1

REPORT INFORMATION
  Report Type: 
  Country: None (occurrence: None)
  Receive Date: 20120131
  Receipt Date: 20120125
  Transmission Date: 20120608
  Serious: Yes (Hospitalization, Other)
  Sender: FDA-Public Use
  Company Number: IT-PFIZER INC-2011150144

PATIENT
  Age: 73 Year
  Sex: Female

DRUGS (6)
  1. LEVOTHYROXINE SODIUM [Concomitant]
     Dosage: UNK
     Dates: start: 20080101
  2. BARNIDIPINE HYDROCHLORIDE [Concomitant]
     Dosage: UNK
     Dates: start: 20080101
  3. BUDESONIDE [Concomitant]
     Dosage: UNK
     Dates: start: 20080101
  4. CORDARONE [Suspect]
     Indication: ARRHYTHMIA
     Dosage: 200 MG, DAILY
     Route: 048
     Dates: start: 20080401, end: 20110430
  5. IRBESARTAN [Concomitant]
     Dosage: UNK
     Dates: start: 20080101
  6. ASPIRIN [Concomitant]
     Dosage: UNK
     Dates: start: 20080101

REACTIONS (2)
  - INTERSTITIAL LUNG DISEASE [None]
  - BRONCHITIS [None]
